FAERS Safety Report 9885318 (Version 6)
Quarter: 2014Q3

REPORT INFORMATION
  Report Type: Report from Study
  Country: AU (occurrence: AU)
  Receive Date: 20140210
  Receipt Date: 20140918
  Transmission Date: 20150326
  Serious: Yes (Hospitalization)
  Sender: FDA-Public Use
  Company Number: PHHO2014AU002013

PATIENT
  Age: 42 Year
  Sex: Female
  Weight: 43.2 kg

DRUGS (40)
  1. IRINOTECAN [Suspect]
     Active Substance: IRINOTECAN
     Indication: COLORECTAL CANCER METASTATIC
     Dosage: 200 MG, UNK
     Route: 042
     Dates: start: 20140122
  2. FENTANYL. [Concomitant]
     Active Substance: FENTANYL
     Dosage: 62 UG, 3/7
     Route: 062
     Dates: start: 20140328
  3. FENTANYL. [Concomitant]
     Active Substance: FENTANYL
     Dosage: 75UG, 3/7
     Route: 062
     Dates: start: 20140717
  4. OSTELIN [Concomitant]
     Active Substance: ERGOCALCIFEROL
     Dosage: 2 DF, UNK
     Route: 048
  5. OESTRADIOL//ESTRADIOL [Concomitant]
     Dosage: 2 DF, QD
     Route: 062
     Dates: start: 20140201
  6. MOVICOL [Concomitant]
     Active Substance: POLYETHYLENE GLYCOL 3350\POTASSIUM CHLORIDE\SODIUM BICARBONATE\SODIUM CHLORIDE
     Dosage: 2 DF, QD
     Route: 048
     Dates: start: 20140515
  7. PANITUMUMAB [Suspect]
     Active Substance: PANITUMUMAB
     Indication: COLORECTAL CANCER METASTATIC
     Dosage: 220 MG, UNK
     Route: 042
     Dates: start: 20140122
  8. COLOXYL WITH SENNA [Concomitant]
     Active Substance: DOCUSATE\SENNOSIDES
     Indication: CONSTIPATION
     Dosage: 50/8 MG, PRN
     Route: 048
  9. FENTANYL. [Concomitant]
     Active Substance: FENTANYL
     Indication: ABDOMINAL PAIN
     Dosage: 75 UG, 3/7
     Route: 062
     Dates: start: 20140112, end: 20140223
  10. TROPISETRON [Concomitant]
     Active Substance: TROPISETRON
     Dosage: 5 MG, QD
     Route: 048
     Dates: start: 20140122
  11. AFINITOR [Suspect]
     Active Substance: EVEROLIMUS
     Indication: COLORECTAL CANCER METASTATIC
     Dosage: 5 MG, QOD
     Route: 048
     Dates: start: 20140122
  12. ONDANSETRON [Concomitant]
     Active Substance: ONDANSETRON
     Indication: VOMITING
  13. OLANZAPINE. [Concomitant]
     Active Substance: OLANZAPINE
     Indication: NAUSEA
     Dosage: 5 MCT BD
     Route: 048
     Dates: start: 20140123
  14. OLANZAPINE. [Concomitant]
     Active Substance: OLANZAPINE
     Indication: VOMITING
     Dosage: 5 MCT BID
     Route: 048
     Dates: start: 20140201
  15. METHADONE [Concomitant]
     Active Substance: METHADONE HYDROCHLORIDE
     Dosage: 2.5 MG, QD
     Route: 048
     Dates: start: 20140115, end: 20140131
  16. DEXAMETHASONE. [Concomitant]
     Active Substance: DEXAMETHASONE
     Dosage: 8 MG, QD
     Route: 042
     Dates: start: 20140122
  17. DOXYCYCLINE. [Concomitant]
     Active Substance: DOXYCYCLINE
     Indication: DRY SKIN
     Dosage: 100 MG, QD
     Route: 048
     Dates: start: 20140202
  18. PANTOPRAZOLE [Concomitant]
     Active Substance: PANTOPRAZOLE SODIUM
     Dosage: 40 MG, QD
     Route: 048
     Dates: start: 20140202
  19. TEMAZEPAM. [Concomitant]
     Active Substance: TEMAZEPAM
     Indication: INSOMNIA
     Dosage: 5 MG, QD
     Route: 048
     Dates: start: 20140201
  20. FENTANYL. [Concomitant]
     Active Substance: FENTANYL
     Dosage: 50 UG, 3/7
     Route: 062
     Dates: start: 20140224, end: 20140317
  21. HYDROCORTISONE. [Concomitant]
     Active Substance: HYDROCORTISONE
     Indication: DRY SKIN
     Dosage: UNK, BID
     Dates: start: 20140220
  22. OXYNORM [Concomitant]
     Active Substance: OXYCODONE HYDROCHLORIDE
     Indication: ABDOMINAL PAIN
     Dosage: 5 MG, QID PRN
     Route: 048
     Dates: start: 20140112
  23. ERYTHROMYCIN. [Concomitant]
     Active Substance: ERYTHROMYCIN
     Indication: CONSTIPATION
     Dosage: 250 MG, TID
     Route: 048
     Dates: start: 20140115
  24. MICROLAX                                /NET/ [Concomitant]
     Indication: CONSTIPATION
     Dosage: 0/1 SUPPOSITORY PRN
     Route: 054
     Dates: start: 20140114
  25. LACTULOSE. [Concomitant]
     Active Substance: LACTULOSE
     Indication: CONSTIPATION
     Dosage: 20 UG, BID PRN
     Route: 048
     Dates: start: 20140113
  26. MOVICOL [Concomitant]
     Active Substance: POLYETHYLENE GLYCOL 3350\POTASSIUM CHLORIDE\SODIUM BICARBONATE\SODIUM CHLORIDE
     Indication: CONSTIPATION
     Dosage: 2 DF, QD
     Route: 048
     Dates: start: 20140113
  27. MIRTAZAPINE. [Concomitant]
     Active Substance: MIRTAZAPINE
     Indication: DEPRESSION
     Dosage: 30 MG, QD
     Route: 048
     Dates: start: 201305
  28. COLOXYL WITH SENNA [Concomitant]
     Active Substance: DOCUSATE\SENNOSIDES
     Dosage: 0/11 DF, BID PRN
     Route: 048
     Dates: start: 20140113
  29. ONDANSETRON [Concomitant]
     Active Substance: ONDANSETRON
     Indication: NAUSEA
     Dosage: 4 MCT TDS PRN
     Route: 058
     Dates: start: 20140131
  30. ATROPINE [Concomitant]
     Active Substance: ATROPINE
     Dosage: 600 UG, QD
     Route: 042
     Dates: start: 20140122
  31. PANADOL [Concomitant]
     Active Substance: ACETAMINOPHEN
     Indication: ABDOMINAL PAIN
     Dosage: 19 G, QID PRN
     Route: 048
  32. LORATADIN [Concomitant]
     Active Substance: LORATADINE
     Indication: DRY SKIN
     Dosage: 10 MG, QD
     Route: 048
     Dates: start: 20140220
  33. FENTANYL. [Concomitant]
     Active Substance: FENTANYL
     Dosage: 200 UG, PRN
     Route: 058
     Dates: start: 20140116
  34. SIMETHICONE [Concomitant]
     Active Substance: DIMETHICONE\SILICON DIOXIDE\SIMETHICONE
     Indication: CONSTIPATION
     Dosage: 90/11 TABLETS TDS PRN
     Route: 048
     Dates: start: 20140121
  35. STEMETIL//PROCHLORPERAZINE [Concomitant]
     Active Substance: PROCHLORPERAZINE
     Indication: DIZZINESS POSTURAL
     Dosage: 5 MG, TID
     Route: 048
     Dates: start: 20140220
  36. TEMAZEPAM. [Concomitant]
     Active Substance: TEMAZEPAM
     Dosage: 10 UNK, UNK
     Route: 048
     Dates: start: 20140114, end: 20140114
  37. CYCLIZINE [Concomitant]
     Active Substance: CYCLIZINE
     Indication: NAUSEA
     Dosage: 25 MG, TID
     Route: 048
     Dates: start: 20140201
  38. CYCLIZINE [Concomitant]
     Active Substance: CYCLIZINE
     Indication: VOMITING
  39. CLEXANE [Concomitant]
     Active Substance: ENOXAPARIN SODIUM
     Dosage: UNK
     Dates: start: 20140202, end: 20140204
  40. METHADONE [Concomitant]
     Active Substance: METHADONE HYDROCHLORIDE
     Indication: ABDOMINAL PAIN
     Dosage: 5 MG, QD
     Route: 048
     Dates: start: 20140201

REACTIONS (2)
  - Hypovolaemia [Recovered/Resolved]
  - Dehydration [Recovered/Resolved]

NARRATIVE: CASE EVENT DATE: 20140131
